FAERS Safety Report 13468974 (Version 2)
Quarter: 2018Q1

REPORT INFORMATION
  Report Type: Spontaneous
  Country: US (occurrence: US)
  Receive Date: 20170421
  Receipt Date: 20180316
  Transmission Date: 20180508
  Serious: Yes (Death)
  Sender: FDA-Public Use
  Company Number: US-LUNDBECK-DKLU2029668

PATIENT
  Age: 82 Year
  Sex: Female

DRUGS (1)
  1. NORTHERA [Suspect]
     Active Substance: DROXIDOPA
     Indication: PARKINSON^S DISEASE
     Route: 065
     Dates: start: 201506

REACTIONS (1)
  - Death [Fatal]

NARRATIVE: CASE EVENT DATE: 20170304
